FAERS Safety Report 6393666-0 (Version None)
Quarter: 2009Q4

REPORT INFORMATION
  Report Type: 
  Country: None (occurrence: None)
  Receive Date: 20091008
  Receipt Date: 20090925
  Transmission Date: 20100525
  Serious: Yes (Death)
  Sender: FDA-Public Use
  Company Number: KR-PFIZER INC-2009273924

PATIENT
  Age: 48 Year

DRUGS (14)
  1. VORICONAZOLE [Suspect]
     Indication: ASPERGILLOSIS
     Dosage: 200 MG, 2X/DAY
     Route: 048
     Dates: start: 20090208, end: 20090214
  2. VORICONAZOLE [Suspect]
     Dosage: 300 MG, 2X/DAY
     Route: 048
     Dates: start: 20090215, end: 20090217
  3. CEFEPIME HYDROCHLORIDE [Concomitant]
     Indication: PNEUMONIA
     Dosage: 1 G, 2X/DAY
     Route: 042
     Dates: start: 20090206, end: 20090225
  4. FILGRASTIM [Concomitant]
     Indication: MYELODYSPLASTIC SYNDROME
     Dosage: 300 UG, 1X/DAY
     Route: 042
     Dates: start: 20081217, end: 20090212
  5. VANCOMYCIN [Concomitant]
     Indication: PNEUMONIA
     Dosage: 1 G, 2X/DAY
     Route: 042
     Dates: start: 20090207, end: 20090212
  6. VANCOMYCIN [Concomitant]
     Dosage: 0.5 G, 2X/DAY
     Route: 042
     Dates: start: 20090213, end: 20090217
  7. ZIPEPROL DIHYDROCHLORIDE [Concomitant]
     Indication: COUGH
     Dosage: 11 ML, 4X/DAY
     Route: 048
     Dates: start: 20090113, end: 20090217
  8. ZIPEPROL DIHYDROCHLORIDE [Concomitant]
     Indication: PRODUCTIVE COUGH
  9. LEVOFLOXACIN [Concomitant]
     Indication: PNEUMONIA
     Dosage: 750 MG, 1X/DAY
     Route: 042
     Dates: start: 20090209, end: 20090223
  10. CODEINE PHOSPHATE [Concomitant]
     Indication: COUGH
     Dosage: 20 MG, 3X/DAY
     Route: 048
     Dates: start: 20081220, end: 20090217
  11. CODEINE PHOSPHATE [Concomitant]
     Indication: PAIN
  12. MEGESTROL ACETATE [Concomitant]
     Indication: CACHEXIA
     Dosage: 20 ML, 1X/DAY
     Route: 048
     Dates: start: 20090209, end: 20090217
  13. PANCREATIN [Concomitant]
     Indication: DYSPEPSIA
     Dosage: 457.7 MG, 3X/DAY
     Route: 048
     Dates: start: 20090124, end: 20090217
  14. ACETYLCYSTEINE [Concomitant]
     Indication: PRODUCTIVE COUGH
     Dosage: 200 MG, 3X/DAY
     Dates: start: 20090210, end: 20090217

REACTIONS (1)
  - CEREBRAL HAEMORRHAGE [None]
